FAERS Safety Report 10014707 (Version 1)
Quarter: 2014Q1

REPORT INFORMATION
  Report Type: Spontaneous
  Country: US (occurrence: US)
  Receive Date: 20140317
  Receipt Date: 20140317
  Transmission Date: 20141002
  Serious: No
  Sender: FDA-Public Use
  Company Number: US-009507513-1403USA004622

PATIENT
  Sex: Female

DRUGS (1)
  1. A + D ORIGINAL OINTMENT [Suspect]
     Indication: DRY SKIN
     Dosage: UNK, UNKNOWN
     Route: 061
     Dates: start: 201403

REACTIONS (2)
  - Rash [Unknown]
  - Erythema [Not Recovered/Not Resolved]
